FAERS Safety Report 16532502 (Version 3)
Quarter: 2019Q4

REPORT INFORMATION
  Report Type: Spontaneous
  Country: JP (occurrence: JP)
  Receive Date: 20190705
  Receipt Date: 20191125
  Transmission Date: 20200122
  Serious: Yes (Other)
  Sender: FDA-Public Use
  Company Number: JP-BRISTOL-MYERS SQUIBB COMPANY-BMS-2019-065130

PATIENT
  Age: 71 Year
  Sex: Male
  Weight: 49.2 kg

DRUGS (1)
  1. OPDIVO [Suspect]
     Active Substance: NIVOLUMAB
     Indication: MALIGNANT MELANOMA
     Dosage: UNK
     Route: 041

REACTIONS (2)
  - Pericardial effusion [Recovered/Resolved]
  - Metastases to heart [Unknown]

NARRATIVE: CASE EVENT DATE: 20190624
